FAERS Safety Report 5684690-1 (Version None)
Quarter: 2008Q1

REPORT INFORMATION
  Report Type: 
  Country: None (occurrence: None)
  Receive Date: 20080328
  Receipt Date: 20070621
  Transmission Date: 20080703
  Serious: Yes (Hospitalization)
  Sender: FDA-Public Use
  Company Number: US-BRISTOL-MYERS SQUIBB COMPANY-13821897

PATIENT
  Age: 72 Year
  Sex: Male
  Weight: 109 kg

DRUGS (5)
  1. ERBITUX [Suspect]
     Indication: ADENOCARCINOMA
     Route: 042
     Dates: start: 20070605
  2. BENADRYL [Concomitant]
     Route: 042
     Dates: start: 20070605, end: 20070612
  3. METFORMIN [Concomitant]
  4. NORVASC [Concomitant]
  5. ZOCOR [Concomitant]

REACTIONS (8)
  - ARTHRALGIA [None]
  - BACK PAIN [None]
  - DERMATITIS ACNEIFORM [None]
  - HYPOKINESIA [None]
  - JOINT SWELLING [None]
  - MUSCULOSKELETAL PAIN [None]
  - PYREXIA [None]
  - SWELLING FACE [None]
